FAERS Safety Report 9212252 (Version 2)
Quarter: 2013Q2

REPORT INFORMATION
  Report Type: Report from Study
  Country: SE (occurrence: SE)
  Receive Date: 20130404
  Receipt Date: 20130510
  Transmission Date: 20140414
  Serious: Yes (Death)
  Sender: FDA-Public Use
  Company Number: SE-AMGEN-SWECT2013023100

PATIENT
  Age: 71 Year
  Sex: Female

DRUGS (1)
  1. ETANERCEPT [Suspect]
     Indication: RHEUMATOID ARTHRITIS
     Dosage: 50 MG, WEEKLY, PRE-FILLED SYRINGE
     Route: 058
     Dates: start: 20110911, end: 20121122

REACTIONS (2)
  - Pyelonephritis [Fatal]
  - Cardiac failure [Fatal]
